FAERS Safety Report 8765310 (Version 1)
Quarter: 2012Q4

REPORT INFORMATION
  Report Type: 
  Country: AU (occurrence: AU)
  Receive Date: 20120831
  Receipt Date: 20120831
  Transmission Date: 20130627
  Serious: Yes (Other)
  Sender: FDA-Public Use
  Company Number: AU-JNJFOC-20120811091

PATIENT
  Age: 3 Year
  Sex: Male

DRUGS (3)
  1. DYMADON FOR KIDS COLOUR FREE [Suspect]
     Indication: ANALGESIC THERAPY
     Route: 048
     Dates: start: 20120822, end: 20120823
  2. DYMADON FOR KIDS COLOUR FREE [Suspect]
     Indication: PYREXIA
     Route: 048
     Dates: start: 20120822, end: 20120823
  3. AMOXYCILLIN [Suspect]
     Indication: PRODUCT USED FOR UNKNOWN INDICATION
     Route: 048
     Dates: start: 20120822

REACTIONS (2)
  - Painful erection [Unknown]
  - Emotional distress [Unknown]
